FAERS Safety Report 9668075 (Version 1)
Quarter: 2013Q4

REPORT INFORMATION
  Report Type: Spontaneous
  Country: US (occurrence: None)
  Receive Date: 20131101
  Receipt Date: 20131101
  Transmission Date: 20140711
  Serious: Yes (Death, Life-Threatening)
  Sender: FDA-Public Use
  Company Number: DAV-AE-MTX-13-57

PATIENT
  Age: 78 Year
  Sex: Female

DRUGS (1)
  1. METHOTREXATE [Suspect]
     Indication: PSORIASIS

REACTIONS (6)
  - Toxicity to various agents [None]
  - Pancytopenia [None]
  - Ulcer [None]
  - Dermatitis [None]
  - Parakeratosis [None]
  - Epidermal necrosis [None]
